FAERS Safety Report 9390432 (Version 1)
Quarter: 2013Q3

REPORT INFORMATION
  Report Type: Report from Study
  Country: CA (occurrence: CA)
  Receive Date: 20130709
  Receipt Date: 20130709
  Transmission Date: 20140515
  Serious: Yes (Other)
  Sender: FDA-Public Use
  Company Number: CA-ROCHE-1245535

PATIENT
  Sex: Female
  Weight: 68 kg

DRUGS (2)
  1. XELODA [Suspect]
     Indication: ADENOCARCINOMA PANCREAS
     Route: 048
     Dates: start: 201302, end: 20130407
  2. RADIOTHERAPY [Concomitant]
     Route: 065
     Dates: start: 201302

REACTIONS (1)
  - Disease progression [Not Recovered/Not Resolved]
